FAERS Safety Report 10570063 (Version 1)
Quarter: 2014Q4

REPORT INFORMATION
  Report Type: Spontaneous
  Country: US (occurrence: None)
  Receive Date: 20141106
  Receipt Date: 20141106
  Transmission Date: 20150529
  Serious: Yes (Disabling)
  Sender: FDA-Public Use
  Company Number: None

PATIENT
  Age: 34 Year
  Sex: Female
  Weight: 58.97 kg

DRUGS (2)
  1. BUTRANS [Suspect]
     Active Substance: BUPRENORPHINE
     Indication: BACK PAIN
     Dosage: 1 PATCH EVERY 7 DAYS, APPLIED TO A SURFACE USUALLY THE SKIN
     Route: 061
     Dates: start: 20141019, end: 20141022
  2. BUTRANS [Suspect]
     Active Substance: BUPRENORPHINE
     Indication: NEURALGIA
     Dosage: 1 PATCH EVERY 7 DAYS, APPLIED TO A SURFACE USUALLY THE SKIN
     Route: 061
     Dates: start: 20141019, end: 20141022

REACTIONS (1)
  - Peripheral swelling [None]

NARRATIVE: CASE EVENT DATE: 20141022
